FAERS Safety Report 8552652-2 (Version None)
Quarter: 2012Q3

REPORT INFORMATION
  Report Type: 
  Country: None (occurrence: None)
  Receive Date: 20120731
  Receipt Date: 20120726
  Transmission Date: 20120928
  Serious: No
  Sender: FDA-Public Use
  Company Number: US-PFIZER INC-2012182120

PATIENT
  Sex: Female
  Weight: 86.168 kg

DRUGS (3)
  1. KLONOPIN [Concomitant]
     Indication: ANXIETY
     Dosage: 1 MG, 2X/DAY
  2. LYRICA [Suspect]
     Indication: NEURALGIA
  3. LYRICA [Suspect]
     Indication: FIBROMYALGIA
     Dosage: 100 MG, 6X/DAY
     Route: 048
     Dates: start: 20060101

REACTIONS (3)
  - PARAESTHESIA [None]
  - PAIN [None]
  - HYPOAESTHESIA [None]
